FAERS Safety Report 13256203 (Version 2)
Quarter: 2017Q1

REPORT INFORMATION
  Report Type: Spontaneous
  Country: BR (occurrence: BR)
  Receive Date: 20170221
  Receipt Date: 20170224
  Transmission Date: 20170428
  Serious: Yes (Hospitalization)
  Sender: FDA-Public Use
  Company Number: BR-ELI_LILLY_AND_COMPANY-BR201702005351

PATIENT
  Sex: Male
  Weight: 66 kg

DRUGS (8)
  1. NUJOL [Concomitant]
     Dosage: UNK, UNKNOWN
     Route: 065
  2. IMOSEC [Concomitant]
     Active Substance: LOPERAMIDE
     Dosage: UNK, UNKNOWN
     Route: 065
  3. TEVAOXALI [Concomitant]
     Active Substance: OXALIPLATIN
     Dosage: 176.5 MG, UNKNOWN
     Route: 042
     Dates: start: 20160830, end: 20170131
  4. ZESTRIL [Concomitant]
     Active Substance: LISINOPRIL
     Dosage: UNK, QD
     Route: 065
  5. TANSULOSINA [Concomitant]
     Dosage: UNK, QD
     Route: 065
  6. DECADRON [Concomitant]
     Active Substance: DEXAMETHASONE
     Dosage: UNK, UNKNOWN
     Route: 065
  7. GEMZAR [Suspect]
     Active Substance: GEMCITABINE HYDROCHLORIDE
     Indication: NON-HODGKIN^S LYMPHOMA
     Dosage: 1350 MG, UNKNOWN
     Route: 042
     Dates: start: 20160830, end: 20170131
  8. OMEPRAZOLE. [Concomitant]
     Active Substance: OMEPRAZOLE
     Dosage: UNK, UNKNOWN
     Route: 065

REACTIONS (7)
  - Leukocytosis [Recovered/Resolved]
  - Off label use [Unknown]
  - C-reactive protein increased [Recovered/Resolved]
  - Diarrhoea [Recovered/Resolved]
  - Abdominal pain [Recovered/Resolved]
  - Enterocolitis [Recovered/Resolved]
  - Pancreatic enzymes increased [Recovered/Resolved]
